FAERS Safety Report 8837688 (Version 3)
Quarter: 2014Q3

REPORT INFORMATION
  Report Type: Report from Study
  Country: US (occurrence: US)
  Receive Date: 20121012
  Receipt Date: 20140821
  Transmission Date: 20150326
  Serious: Yes (Other)
  Sender: FDA-Public Use
  Company Number: US-ROCHE-1137120

PATIENT
  Sex: Female

DRUGS (15)
  1. DI-GEL [Concomitant]
  2. TYLENOL [Concomitant]
     Active Substance: ACETAMINOPHEN
  3. CHLOROPHYLL [Concomitant]
     Dosage: 4 TABLESPOONS
     Route: 065
  4. LORTAB [Concomitant]
     Active Substance: ACETAMINOPHEN\HYDROCODONE BITARTRATE
  5. IVIG [Concomitant]
     Active Substance: HUMAN IMMUNOGLOBULIN G
  6. TUMS [Concomitant]
     Active Substance: CALCIUM CARBONATE
  7. PEPCID [Concomitant]
     Active Substance: FAMOTIDINE
     Route: 065
  8. ALOE [Concomitant]
     Active Substance: ALOE
  9. RITUXAN [Suspect]
     Active Substance: RITUXIMAB
     Indication: THROMBOCYTOPENIA
     Route: 042
     Dates: start: 20000731
  10. RITUXAN [Suspect]
     Active Substance: RITUXIMAB
     Indication: IMMUNE THROMBOCYTOPENIC PURPURA
     Route: 042
     Dates: start: 20000627
  11. PREDNISONE. [Concomitant]
     Active Substance: PREDNISONE
     Route: 065
  12. RITUXAN [Suspect]
     Active Substance: RITUXIMAB
     Dosage: SECOND COURSE, FIRST TREATMENT
     Route: 042
     Dates: start: 20010705
  13. PREDNISONE. [Concomitant]
     Active Substance: PREDNISONE
     Route: 065
  14. PREDNISONE. [Concomitant]
     Active Substance: PREDNISONE
     Route: 065
  15. PREDNISONE. [Concomitant]
     Active Substance: PREDNISONE
     Route: 065

REACTIONS (31)
  - Epistaxis [Unknown]
  - Ecchymosis [Unknown]
  - Gastrooesophageal reflux disease [Unknown]
  - Haematochezia [Unknown]
  - Hot flush [Unknown]
  - Tachycardia [Recovered/Resolved]
  - Rhinorrhoea [Unknown]
  - Tooth abscess [Unknown]
  - Contusion [Unknown]
  - Sinusitis [Recovering/Resolving]
  - Toothache [Unknown]
  - Lacrimation increased [Recovered/Resolved]
  - Crohn^s disease [Unknown]
  - Platelet count decreased [Unknown]
  - Myalgia [Unknown]
  - Arthralgia [Unknown]
  - Dysphagia [Unknown]
  - Muscle spasms [Unknown]
  - Nausea [Recovering/Resolving]
  - Vomiting [Unknown]
  - Fatigue [Unknown]
  - Tenderness [Unknown]
  - Ingrowing nail [Unknown]
  - Cough [Recovered/Resolved]
  - Abdominal pain [Unknown]
  - Headache [Recovered/Resolved]
  - Hyperhidrosis [Unknown]
  - Asthenia [Unknown]
  - Sneezing [Unknown]
  - Oropharyngeal pain [Unknown]
  - Upper-airway cough syndrome [Unknown]
